FAERS Safety Report 9027780 (Version 4)
Quarter: 2013Q2

REPORT INFORMATION
  Report Type: Spontaneous
  Country: US (occurrence: US)
  Receive Date: 20130124
  Receipt Date: 20130419
  Transmission Date: 20140414
  Serious: No
  Sender: FDA-Public Use
  Company Number: US-009507513-1301USA004878

PATIENT
  Age: 62 Year
  Sex: Male

DRUGS (2)
  1. PEGINTRON [Suspect]
     Indication: HEPATITIS C
     Dosage: UNK
     Dates: start: 20130104
  2. RIBAVIRIN [Suspect]
     Indication: HEPATITIS C
     Dosage: UNK
     Dates: start: 20130104

REACTIONS (34)
  - Laboratory test abnormal [Unknown]
  - Laboratory test abnormal [Unknown]
  - Blood disorder [Unknown]
  - Gastrointestinal disorder [Unknown]
  - Somnolence [Recovering/Resolving]
  - Pain [Unknown]
  - Pain [Unknown]
  - Dysgeusia [Unknown]
  - Infection [Unknown]
  - Constipation [Unknown]
  - Decreased appetite [Unknown]
  - Headache [Unknown]
  - Leukopenia [Unknown]
  - Headache [Recovered/Resolved]
  - Headache [Recovering/Resolving]
  - White blood cell count decreased [Unknown]
  - Influenza like illness [Unknown]
  - Influenza like illness [Unknown]
  - Influenza like illness [Recovering/Resolving]
  - Injection site reaction [Unknown]
  - Injection site reaction [Unknown]
  - Injection site reaction [Unknown]
  - Injection site reaction [Recovering/Resolving]
  - Injection site reaction [Unknown]
  - White blood cell count decreased [Unknown]
  - Leukopenia [Unknown]
  - Respiratory disorder [Unknown]
  - Dysgeusia [Unknown]
  - Prostatitis [Unknown]
  - Injection site reaction [Unknown]
  - Constipation [Unknown]
  - Gastrointestinal disorder [Unknown]
  - White blood cell count decreased [Unknown]
  - Leukopenia [Unknown]
